FAERS Safety Report 11860168 (Version 2)
Quarter: 2015Q4

REPORT INFORMATION
  Report Type: Report from Study
  Country: CA (occurrence: CA)
  Receive Date: 20151222
  Receipt Date: 20151228
  Transmission Date: 20160305
  Serious: Yes (Other)
  Sender: FDA-Public Use
  Company Number: CA-ABBVIE-15K-028-1523710-00

PATIENT
  Sex: Female

DRUGS (1)
  1. HUMIRA [Suspect]
     Active Substance: ADALIMUMAB
     Indication: COLITIS ULCERATIVE
     Route: 058
     Dates: start: 20120330, end: 2014

REACTIONS (4)
  - Drug ineffective [Not Recovered/Not Resolved]
  - Aphonia [Recovered/Resolved]
  - Laryngitis [Recovered/Resolved]
  - Colitis ulcerative [Recovered/Resolved]
